FAERS Safety Report 8141507-3 (Version None)
Quarter: 2012Q1

REPORT INFORMATION
  Report Type: 
  Country: None (occurrence: None)
  Receive Date: 20120216
  Receipt Date: 20120206
  Transmission Date: 20120608
  Serious: Yes (Hospitalization)
  Sender: FDA-Public Use
  Company Number: US-ROCHE-1039898

PATIENT
  Sex: Female
  Weight: 105 kg

DRUGS (4)
  1. ZELBORAF [Suspect]
     Indication: MALIGNANT MELANOMA
     Route: 048
     Dates: start: 20111220
  2. INSULIN [Concomitant]
     Indication: DIABETES MELLITUS
  3. FRAGMIN [Concomitant]
  4. METFORMIN HCL [Concomitant]
     Indication: DIABETES MELLITUS

REACTIONS (5)
  - SUPERIOR VENA CAVA SYNDROME [None]
  - TRACHEAL DISORDER [None]
  - PULMONARY MASS [None]
  - PNEUMONIA [None]
  - DISEASE PROGRESSION [None]
